FAERS Safety Report 10056973 (Version 2)
Quarter: 2014Q2

REPORT INFORMATION
  Report Type: Spontaneous
  Country: US (occurrence: US)
  Receive Date: 20140403
  Receipt Date: 20140403
  Transmission Date: 20141212
  Serious: Yes (Other)
  Sender: FDA-Public Use
  Company Number: US-US-EMD SERONO, INC.-7094718

PATIENT
  Age: 54 Year
  Sex: Female

DRUGS (1)
  1. REBIF [Suspect]
     Indication: MULTIPLE SCLEROSIS
     Route: 058
     Dates: start: 20110325

REACTIONS (5)
  - Type 2 diabetes mellitus [Recovering/Resolving]
  - Renal function test abnormal [Unknown]
  - Blood cholesterol increased [Recovering/Resolving]
  - Neuropathy peripheral [Unknown]
  - Liver function test abnormal [Unknown]
